FAERS Safety Report 6354575-6 (Version None)
Quarter: 2009Q3

REPORT INFORMATION
  Report Type: 
  Country: None (occurrence: None)
  Receive Date: 20090909
  Receipt Date: 20090825
  Transmission Date: 20100115
  Serious: Yes (Hospitalization, Disabling)
  Sender: FDA-Public Use
  Company Number: 2009002469

PATIENT

DRUGS (2)
  1. ERLOTINIB HYDROCHLORIDE [Suspect]
     Indication: COLORECTAL CANCER METASTATIC
     Dosage: QD, ORAL
     Route: 048
     Dates: start: 20080125, end: 20090625
  2. BEVACIZUMAB [Suspect]
     Indication: NEOPLASM MALIGNANT
     Dates: start: 20080125, end: 20090615

REACTIONS (2)
  - DRUG TOXICITY [None]
  - INFECTED SKIN ULCER [None]
